FAERS Safety Report 7625914-0 (Version None)
Quarter: 2011Q3

REPORT INFORMATION
  Report Type: 
  Country: None (occurrence: None)
  Receive Date: 20110721
  Receipt Date: 20110721
  Transmission Date: 20111222
  Serious: No
  Sender: FDA-Public Use
  Company Number: None

PATIENT
  Age: 60 Year
  Sex: Female
  Weight: 61.234 kg

DRUGS (1)
  1. EQUATE HAIR REGROWTH TREATMENT (OTC) [Suspect]
     Indication: ALOPECIA
     Dosage: 1 ML
     Route: 061
     Dates: start: 20110718, end: 20110719

REACTIONS (1)
  - HAIR GROWTH ABNORMAL [None]
